FAERS Safety Report 12616819 (Version 4)
Quarter: 2017Q2

REPORT INFORMATION
  Report Type: Spontaneous
  Country: KR (occurrence: KR)
  Receive Date: 20160802
  Receipt Date: 20170612
  Transmission Date: 20170830
  Serious: Yes (Hospitalization)
  Sender: FDA-Public Use
  Company Number: KR-009507513-1608KOR000001

PATIENT
  Age: 78 Year
  Sex: Male

DRUGS (48)
  1. FLUOROURACIL. [Concomitant]
     Active Substance: FLUOROURACIL
     Indication: OESOPHAGEAL CARCINOMA
     Dosage: 2000 MG, QD, CYCLE 1
     Route: 042
     Dates: start: 20160216, end: 20160218
  2. VASTINAN [Concomitant]
     Indication: PROPHYLAXIS
     Dosage: 1 TABLET, BID
     Route: 048
  3. TRESTAN [Concomitant]
     Active Substance: LYSINE HYDROCHLORIDE
     Indication: PROPHYLAXIS
     Dosage: 1 CAPSULE, BID
     Route: 048
  4. BAMEDIN [Concomitant]
     Indication: PROPHYLAXIS
     Dosage: 1 TABLET, QD
     Route: 048
  5. POTASSIUM CHLORIDE. [Concomitant]
     Active Substance: POTASSIUM CHLORIDE
     Dosage: 0.5 AMPLE, BID
     Route: 042
     Dates: start: 20160412, end: 20160412
  6. LASIX [Concomitant]
     Active Substance: FUROSEMIDE
     Indication: PROPHYLAXIS
     Dosage: 20 MG, ONCE
     Route: 042
     Dates: start: 20160216, end: 20160216
  7. EMEND (FOSAPREPITANT DIMEGLUMINE) [Suspect]
     Active Substance: FOSAPREPITANT DIMEGLUMINE
     Indication: PROPHYLAXIS OF NAUSEA AND VOMITING
     Dosage: 150 MG, ONCE
     Route: 042
     Dates: start: 20160216, end: 20160216
  8. DEXA (DEXAMETHASONE SODIUM PHOSPHATE) [Concomitant]
     Dosage: 5 MG, QD
     Route: 042
     Dates: start: 20160315, end: 20160318
  9. ALOXI [Concomitant]
     Active Substance: PALONOSETRON HYDROCHLORIDE
     Indication: PROPHYLAXIS OF NAUSEA AND VOMITING
     Dosage: 0.25 MG, ONCE
     Route: 042
     Dates: start: 20160216, end: 20160216
  10. POTASSIUM CHLORIDE. [Concomitant]
     Active Substance: POTASSIUM CHLORIDE
     Indication: PROPHYLAXIS
     Dosage: 0.5 AMPLE, BID
     Route: 042
     Dates: start: 20160216, end: 20160216
  11. LASIX [Concomitant]
     Active Substance: FUROSEMIDE
     Dosage: 20 MG, ONCE
     Route: 042
     Dates: start: 20160315, end: 20160315
  12. PIPRINHYDRINATE [Concomitant]
     Indication: PROPHYLAXIS OF NAUSEA AND VOMITING
     Dosage: 1.5 MG, ONCE
     Route: 042
     Dates: start: 20160219, end: 20160219
  13. MACPERAN [Concomitant]
     Active Substance: METOCLOPRAMIDE HYDROCHLORIDE
     Indication: PROPHYLAXIS OF NAUSEA AND VOMITING
     Dosage: 10 MG, ONCE
     Route: 042
     Dates: start: 20160219, end: 20160219
  14. FLUOROURACIL. [Concomitant]
     Active Substance: FLUOROURACIL
     Dosage: 1980 MG, QD, CYCLE 2
     Route: 042
     Dates: start: 20160315, end: 20160317
  15. FLUOROURACIL. [Concomitant]
     Active Substance: FLUOROURACIL
     Dosage: 1980 MG, QD, CYCLE 3
     Route: 042
     Dates: start: 20160412, end: 20160414
  16. CISPLATIN. [Concomitant]
     Active Substance: CISPLATIN
     Dosage: 73 MG, ONCE, CYCLE 3
     Route: 042
     Dates: start: 20160412, end: 20160412
  17. CISPLATIN. [Concomitant]
     Active Substance: CISPLATIN
     Dosage: 73 MG, ONCE, CYCLE 4
     Route: 042
     Dates: start: 20160517, end: 20160517
  18. ALOXI [Concomitant]
     Active Substance: PALONOSETRON HYDROCHLORIDE
     Dosage: 0.25 MG, ONCE
     Route: 042
     Dates: start: 20160315, end: 20160315
  19. ALOXI [Concomitant]
     Active Substance: PALONOSETRON HYDROCHLORIDE
     Dosage: 0.25 MG, ONCE
     Route: 042
     Dates: start: 20160412, end: 20160412
  20. MAGNESIN (MAGNESIUM SULFATE) [Concomitant]
     Dosage: 0.5 AMPLE, ONCE
     Route: 042
     Dates: start: 20160517, end: 20160517
  21. POTASSIUM CHLORIDE. [Concomitant]
     Active Substance: POTASSIUM CHLORIDE
     Dosage: 0.5 AMPLE, BID
     Route: 042
     Dates: start: 20160517, end: 20160517
  22. EMEND (FOSAPREPITANT DIMEGLUMINE) [Suspect]
     Active Substance: FOSAPREPITANT DIMEGLUMINE
     Dosage: 150 MG, ONCE
     Route: 042
     Dates: start: 20160517, end: 20160517
  23. CISPLATIN. [Concomitant]
     Active Substance: CISPLATIN
     Indication: OESOPHAGEAL CARCINOMA
     Dosage: 73 MG, ONCE, CYCLE 1
     Route: 042
     Dates: start: 20160216, end: 20160216
  24. MAGNESIN (MAGNESIUM SULFATE) [Concomitant]
     Indication: PROPHYLAXIS
     Dosage: 2 G, ONCE
     Dates: start: 20160216, end: 20160216
  25. MACPERAN [Concomitant]
     Active Substance: METOCLOPRAMIDE HYDROCHLORIDE
     Indication: PROPHYLAXIS OF NAUSEA AND VOMITING
     Dosage: 5 MG, TID
     Route: 048
     Dates: start: 20160219, end: 20160223
  26. DEXA (DEXAMETHASONE SODIUM PHOSPHATE) [Concomitant]
     Dosage: 5 MG, QD
     Route: 042
     Dates: start: 20160412, end: 20160415
  27. ULCERLMIN [Concomitant]
     Active Substance: SUCRALFATE
     Indication: PROPHYLAXIS
     Dosage: 15 ML, BID
     Route: 048
  28. POTASSIUM CHLORIDE. [Concomitant]
     Active Substance: POTASSIUM CHLORIDE
     Dosage: 0.5 AMPLE, BID
     Route: 042
     Dates: start: 20160315, end: 20160315
  29. EMEND (FOSAPREPITANT DIMEGLUMINE) [Suspect]
     Active Substance: FOSAPREPITANT DIMEGLUMINE
     Dosage: 150 MG, ONCE
     Route: 042
     Dates: start: 20160315, end: 20160315
  30. SUPERCET [Concomitant]
     Indication: PAIN PROPHYLAXIS
     Dosage: 1 TABLET, QD
     Route: 048
  31. ERDOS [Concomitant]
     Indication: PROPHYLAXIS
     Dosage: 1 CAPSULE, BID
     Route: 048
  32. MAGNESIN (MAGNESIUM SULFATE) [Concomitant]
     Dosage: 0.5 AMPLE, ONCE
     Route: 042
     Dates: start: 20160315, end: 20160315
  33. MACPERAN [Concomitant]
     Active Substance: METOCLOPRAMIDE HYDROCHLORIDE
     Dosage: 5 MG, TID
     Route: 048
     Dates: start: 20160415, end: 20160419
  34. LASIX [Concomitant]
     Active Substance: FUROSEMIDE
     Dosage: 20 MG, ONCE
     Route: 042
     Dates: start: 20160517, end: 20160517
  35. OTILONIUM BROMIDE [Concomitant]
     Active Substance: OTILONIUM BROMIDE
     Indication: PROPHYLAXIS
     Dosage: 2 DF, BID
     Route: 048
  36. DEXA (DEXAMETHASONE SODIUM PHOSPHATE) [Concomitant]
     Indication: PROPHYLAXIS OF NAUSEA AND VOMITING
     Dosage: 5 MG, QD
     Route: 042
     Dates: start: 20160216, end: 20160219
  37. ALOXI [Concomitant]
     Active Substance: PALONOSETRON HYDROCHLORIDE
     Dosage: 0.25 MG, ONCE
     Route: 042
     Dates: start: 20160517, end: 20160517
  38. THRUPAS [Concomitant]
     Active Substance: SILODOSIN
     Indication: PROPHYLAXIS
     Dosage: 1 TABLET, BID
     Route: 048
  39. AMBROXOL ACEFYLLINATE [Concomitant]
     Active Substance: AMBROXOL ACEFYLLINATE
     Indication: PROPHYLAXIS
     Dosage: 1 CAPSULE, BID
     Route: 048
  40. AMOSARTAN [Concomitant]
     Indication: HYPERTENSION
     Dosage: 1 TABLET, QD
     Route: 048
  41. MAGNESIN (MAGNESIUM SULFATE) [Concomitant]
     Dosage: 0.5 AMPLE, ONCE
     Route: 042
     Dates: start: 20160412, end: 20160412
  42. EMEND (FOSAPREPITANT DIMEGLUMINE) [Suspect]
     Active Substance: FOSAPREPITANT DIMEGLUMINE
     Dosage: 150 MG, ONCE
     Route: 042
     Dates: start: 20160412, end: 20160412
  43. FLUOROURACIL. [Concomitant]
     Active Substance: FLUOROURACIL
     Dosage: 1980 MG, QD, CYCLE 4
     Route: 042
     Dates: start: 20160517, end: 20160519
  44. CISPLATIN. [Concomitant]
     Active Substance: CISPLATIN
     Dosage: 73 MG, ONCE, CYCLE 2
     Route: 042
     Dates: start: 20160315, end: 20160315
  45. DEXA (DEXAMETHASONE SODIUM PHOSPHATE) [Concomitant]
     Dosage: 5 MG, QD
     Route: 042
     Dates: start: 20160517, end: 20160520
  46. PARIET [Concomitant]
     Active Substance: RABEPRAZOLE SODIUM
     Indication: PROPHYLAXIS
     Dosage: 1 TABLET, QD
     Route: 048
  47. MACPERAN [Concomitant]
     Active Substance: METOCLOPRAMIDE HYDROCHLORIDE
     Dosage: 5 MG, TID
     Route: 048
     Dates: start: 20160520, end: 20160524
  48. LASIX [Concomitant]
     Active Substance: FUROSEMIDE
     Dosage: 20 MG, ONCE
     Route: 042
     Dates: start: 20160412, end: 20160412

REACTIONS (1)
  - Upper respiratory tract infection [Recovered/Resolved]

NARRATIVE: CASE EVENT DATE: 20160421
